FAERS Safety Report 7344639-2 (Version None)
Quarter: 2011Q1

REPORT INFORMATION
  Report Type: 
  Country: None (occurrence: None)
  Receive Date: 20110307
  Receipt Date: 20110307
  Transmission Date: 20110831
  Serious: No
  Sender: FDA-Public Use
  Company Number: None

PATIENT
  Age: 53 Year
  Sex: Female
  Weight: 50.8029 kg

DRUGS (1)
  1. BONIVA [Suspect]
     Indication: OSTEOPOROSIS
     Dosage: 150 MG ONCE A MONTH (3 MONTHS EST.)
     Dates: start: 20100803, end: 20110203

REACTIONS (7)
  - ABDOMINAL PAIN UPPER [None]
  - SNEEZING [None]
  - PRURITUS [None]
  - INFLUENZA LIKE ILLNESS [None]
  - PAIN IN EXTREMITY [None]
  - URTICARIA [None]
  - ARTHRALGIA [None]
